FAERS Safety Report 6165486-3 (Version None)
Quarter: 2009Q2

REPORT INFORMATION
  Report Type: 
  Country: None (occurrence: None)
  Receive Date: 20090423
  Receipt Date: 20090416
  Transmission Date: 20091009
  Serious: Yes (Hospitalization)
  Sender: FDA-Public Use
  Company Number: US-GILEAD-2009-0021518

PATIENT
  Sex: Female
  Weight: 72.64 kg

DRUGS (29)
  1. LETAIRIS [Suspect]
     Indication: PULMONARY ARTERIAL HYPERTENSION
     Route: 048
     Dates: start: 20090319
  2. REVATIO [Concomitant]
  3. COUMADIN [Concomitant]
  4. LASIX [Concomitant]
  5. ZAROXOLYN [Concomitant]
  6. ENALAPRIL MALEATE [Concomitant]
  7. ALDACTONE [Concomitant]
  8. TOPROL-XL [Concomitant]
  9. AMIODARONE HCL [Concomitant]
  10. PROCRIT [Concomitant]
  11. SYNTHROID [Concomitant]
  12. ZOCOR [Concomitant]
  13. REGLAN [Concomitant]
  14. CARAFATE [Concomitant]
  15. PROMETHAZINE [Concomitant]
  16. LORTAB [Concomitant]
  17. MIRALAX [Concomitant]
  18. HEMOCYTE PLUS [Concomitant]
  19. DELTASONE [Concomitant]
  20. TRUSOPT [Concomitant]
  21. PROTONIX [Concomitant]
  22. ALPHAGAN P [Concomitant]
  23. CELEBREX [Concomitant]
  24. AVANDIA [Concomitant]
  25. PREDNISONE [Concomitant]
  26. TRAVATAN [Concomitant]
  27. ALPRAZOLAM [Concomitant]
  28. COMBIVENT [Concomitant]
  29. POTASSIUM CHLORIDE [Concomitant]

REACTIONS (1)
  - PULMONARY ARTERIAL HYPERTENSION [None]
